FAERS Safety Report 25818222 (Version 1)
Quarter: 2025Q3

REPORT INFORMATION
  Report Type: Spontaneous
  Country: JP (occurrence: JP)
  Receive Date: 20250918
  Receipt Date: 20250918
  Transmission Date: 20251021
  Serious: Yes (Hospitalization)
  Sender: NOVO NORDISK
  Company Number: JP-NOVOPROD-1520337

PATIENT
  Age: 9 Decade
  Sex: Male
  Weight: 120 kg

DRUGS (1)
  1. WEGOVY [Suspect]
     Active Substance: SEMAGLUTIDE
     Indication: Obesity
     Dosage: 1.7 MG, QW
     Route: 058
     Dates: start: 20250626

REACTIONS (2)
  - Inguinal hernia [Recovered/Resolved]
  - Joint contracture [Recovered/Resolved]

NARRATIVE: CASE EVENT DATE: 20250626
